FAERS Safety Report 8680359 (Version 2)
Quarter: 2014Q3

REPORT INFORMATION
  Report Type: Spontaneous
  Country: US (occurrence: US)
  Receive Date: 20120724
  Receipt Date: 20140710
  Transmission Date: 20150326
  Serious: Yes (Other)
  Sender: FDA-Public Use
  Company Number: US-BAYER-2012-073275

PATIENT
  Age: 25 Year
  Sex: Female

DRUGS (3)
  1. DIFLUCAN [Concomitant]
     Active Substance: FLUCONAZOLE
  2. MIRENA [Suspect]
     Active Substance: LEVONORGESTREL
     Indication: ENDOMETRIOSIS
  3. MIRENA [Suspect]
     Active Substance: LEVONORGESTREL
     Indication: CONTRACEPTION
     Dosage: 20 ?G/D, CONT
     Route: 015
     Dates: start: 20120717

REACTIONS (10)
  - Vaginal inflammation [Not Recovered/Not Resolved]
  - Abdominal pain [Recovered/Resolved]
  - Menstrual disorder [None]
  - Post procedural haemorrhage [None]
  - Syncope [Recovered/Resolved]
  - Vulvovaginal pruritus [Not Recovered/Not Resolved]
  - Vulvovaginal pain [Not Recovered/Not Resolved]
  - Coital bleeding [Recovering/Resolving]
  - Vulvovaginal pain [Not Recovered/Not Resolved]
  - Papilloma viral infection [None]

NARRATIVE: CASE EVENT DATE: 201207
